FAERS Safety Report 4340079-9 (Version None)
Quarter: 2004Q2

REPORT INFORMATION
  Report Type: 
  Country: None (occurrence: None)
  Receive Date: 20040416
  Receipt Date: 20040412
  Transmission Date: 20050107
  Serious: Yes (Other)
  Sender: FDA-Public Use
  Company Number: US-BRISTOL-MYERS SQUIBB COMPANY-12557344

PATIENT
  Age: 84 Year
  Sex: Male
  Weight: 73 kg

DRUGS (12)
  1. TEQUIN [Suspect]
     Indication: EAR INFECTION
     Route: 048
     Dates: start: 20040323, end: 20040326
  2. HUMULIN N [Concomitant]
     Dosage: 30 MG IN THE AM AND 15-20 MG IN THE PM
  3. HUMULIN R [Concomitant]
  4. AMARYL [Concomitant]
  5. TENORMIN [Concomitant]
  6. COUMADIN [Concomitant]
  7. LANOXIN [Concomitant]
  8. IMDUR [Concomitant]
  9. DEMADEX [Concomitant]
  10. ALDACTONE [Concomitant]
  11. NORVASC [Concomitant]
  12. REGLAN [Concomitant]

REACTIONS (2)
  - HYPERGLYCAEMIA [None]
  - HYPOGLYCAEMIA [None]
